FAERS Safety Report 24558139 (Version 2)
Quarter: 2024Q4

REPORT INFORMATION
  Report Type: Spontaneous
  Country: SE (occurrence: SE)
  Receive Date: 20241028
  Receipt Date: 20241203
  Transmission Date: 20250114
  Serious: Yes (Other)
  Sender: ABBVIE
  Company Number: SE-REIGJOFR-202400663

PATIENT
  Age: 52 Year
  Sex: Male

DRUGS (5)
  1. SEVOFLURANE [Suspect]
     Active Substance: SEVOFLURANE
     Indication: Maintenance of anaesthesia
     Dosage: MAC 0.6
     Route: 055
     Dates: start: 20240823, end: 20240823
  2. ALFENTANIL [Concomitant]
     Active Substance: ALFENTANIL
     Indication: Induction of anaesthesia
     Dates: start: 20240823, end: 20240823
  3. PROPOFOL [Concomitant]
     Active Substance: PROPOFOL
     Indication: Induction of anaesthesia
     Dates: start: 20240823, end: 20240823
  4. SUCCINYLCHOLINE [Concomitant]
     Active Substance: SUCCINYLCHOLINE\SUCCINYLCHOLINE CHLORIDE
     Indication: Induction of anaesthesia
     Dates: start: 20240823, end: 20240823
  5. REMIFENTANIL [Suspect]
     Active Substance: REMIFENTANIL
     Indication: Maintenance of anaesthesia
     Dosage: 3 NG/ML
     Route: 042
     Dates: start: 20240823, end: 20240823

REACTIONS (5)
  - Sedation complication [Recovered/Resolved]
  - Tachycardia [Recovered/Resolved]
  - Tearfulness [Recovered/Resolved]
  - Dyspnoea [Recovered/Resolved]
  - Drug ineffective [Recovered/Resolved]

NARRATIVE: CASE EVENT DATE: 20240823
